FAERS Safety Report 20104380 (Version 2)
Quarter: 2021Q4

REPORT INFORMATION
  Report Type: Spontaneous
  Country: JP (occurrence: JP)
  Receive Date: 20211123
  Receipt Date: 20211202
  Transmission Date: 20220303
  Serious: Yes (Other)
  Sender: FDA-Public Use
  Company Number: JP-NOVARTISPH-GXJP2018JP001036

PATIENT
  Age: 69 Year
  Sex: Female

DRUGS (10)
  1. METHOTREXATE [Suspect]
     Active Substance: METHOTREXATE
     Indication: Rheumatoid vasculitis
     Dosage: 10 MG, QW
     Route: 048
  2. METHOTREXATE [Suspect]
     Active Substance: METHOTREXATE
     Indication: Skin ulcer
  3. IMURAN [Suspect]
     Active Substance: AZATHIOPRINE
     Indication: Rheumatoid vasculitis
     Dosage: UNK
     Route: 048
  4. IMURAN [Suspect]
     Active Substance: AZATHIOPRINE
     Indication: Skin ulcer
  5. METHYLPREDNISOLONE [Suspect]
     Active Substance: METHYLPREDNISOLONE
     Indication: Rheumatoid vasculitis
     Dosage: 16 MG, QD
     Route: 065
  6. METHYLPREDNISOLONE [Suspect]
     Active Substance: METHYLPREDNISOLONE
     Indication: Skin ulcer
  7. PREDNISOLONE [Suspect]
     Active Substance: PREDNISOLONE
     Indication: Rheumatoid vasculitis
     Dosage: LOW DOSE
     Route: 065
     Dates: start: 2002
  8. PREDNISOLONE [Suspect]
     Active Substance: PREDNISOLONE
     Indication: Skin ulcer
     Dosage: DOSE INCREASED
     Route: 065
  9. CYCLOPHOSPHAMIDE [Suspect]
     Active Substance: CYCLOPHOSPHAMIDE
     Indication: Rheumatoid vasculitis
     Dosage: UNK
     Route: 065
  10. CYCLOPHOSPHAMIDE [Suspect]
     Active Substance: CYCLOPHOSPHAMIDE
     Indication: Skin ulcer

REACTIONS (4)
  - Skin ulcer [Recovering/Resolving]
  - Oedema peripheral [Recovering/Resolving]
  - Condition aggravated [Recovering/Resolving]
  - Drug ineffective [Unknown]
